FAERS Safety Report 5123941-9 (Version None)
Quarter: 2006Q3

REPORT INFORMATION
  Report Type: 
  Country: None (occurrence: None)
  Receive Date: 20060811
  Receipt Date: 20060613
  Transmission Date: 20061208
  Serious: No
  Sender: FDA-Public Use
  Company Number: S06-USA-02334-01

PATIENT
  Age: 77 Year
  Sex: Female

DRUGS (5)
  1. NAMENDA [Suspect]
     Indication: DEMENTIA
     Dosage: 5 MG QD PO
     Route: 048
     Dates: start: 20060610
  2. PRAVACHOL [Concomitant]
  3. MIRTAZAPINE [Concomitant]
  4. ALTACE [Concomitant]
  5. ASPIRIN [Concomitant]

REACTIONS (2)
  - ASTHENIA [None]
  - DEPRESSED MOOD [None]
